FAERS Safety Report 8956238 (Version 1)
Quarter: 2012Q4

REPORT INFORMATION
  Report Type: 
  Country: PL (occurrence: PL)
  Receive Date: 20121210
  Receipt Date: 20121210
  Transmission Date: 20130627
  Serious: Yes (Other)
  Sender: FDA-Public Use
  Company Number: PHHY2012PL112461

PATIENT
  Age: 36 Year
  Sex: Female

DRUGS (6)
  1. BASILIXIMAB [Suspect]
     Indication: RENAL TRANSPLANT
  2. PANTOPRAZOLE [Concomitant]
     Dosage: 20 mg, UNK
  3. TACROLIMUS [Concomitant]
     Indication: IMMUNOSUPPRESSION
  4. MYFORTIC [Concomitant]
     Indication: IMMUNOSUPPRESSION
     Dosage: 1 g, BID
  5. MYFORTIC [Concomitant]
     Dosage: 760 mg, UNK
     Dates: start: 20121012
  6. PREDNISONE [Concomitant]
     Indication: IMMUNOSUPPRESSION
     Dosage: 5 mg, UNK

REACTIONS (3)
  - Ureteral necrosis [Unknown]
  - Dyspepsia [Unknown]
  - Diarrhoea [Unknown]
